FAERS Safety Report 21684051 (Version 1)
Quarter: 2022Q4

REPORT INFORMATION
  Report Type: Spontaneous
  Country: US (occurrence: None)
  Receive Date: 20221202
  Receipt Date: 20221202
  Transmission Date: 20230113
  Serious: Yes (Disabling)
  Sender: FDA-Public Use
  Company Number: None

PATIENT
  Age: 57 Year
  Sex: Female

DRUGS (37)
  1. GADAVIST [Suspect]
     Active Substance: GADOBUTROL
  2. PRAVASTATIN [Concomitant]
     Active Substance: PRAVASTATIN
  3. LIOTHYRONINE [Concomitant]
     Active Substance: LIOTHYRONINE
  4. SYNTHROID [Concomitant]
     Active Substance: LEVOTHYROXINE SODIUM
  5. SPIRONOLACTONE [Concomitant]
     Active Substance: SPIRONOLACTONE
  6. TIZANIDINE [Concomitant]
     Active Substance: TIZANIDINE
  7. PRAZOSIN [Concomitant]
     Active Substance: PRAZOSIN
  8. hydrocodone-aceamin [Concomitant]
  9. BUPRENORPHINE [Concomitant]
     Active Substance: BUPRENORPHINE
  10. IMITREX [Concomitant]
     Active Substance: SUMATRIPTAN SUCCINATE
  11. CLONAZEPAM [Concomitant]
     Active Substance: CLONAZEPAM
  12. BUSPIRONE [Concomitant]
     Active Substance: BUSPIRONE HYDROCHLORIDE
  13. NORTRIPTYLINE [Concomitant]
     Active Substance: NORTRIPTYLINE
  14. METOPROLOL TARTRATE [Concomitant]
     Active Substance: METOPROLOL TARTRATE
  15. AMBIEN [Concomitant]
     Active Substance: ZOLPIDEM TARTRATE
  16. ONDANSETRON [Concomitant]
     Active Substance: ONDANSETRON
  17. NASACORT [Concomitant]
     Active Substance: TRIAMCINOLONE ACETONIDE
  18. ADVIL [Concomitant]
     Active Substance: IBUPROFEN
  19. ARCTIC COD LIVER OIL [Concomitant]
  20. cytidine choline/cdp [Concomitant]
  21. ZINC PICOLINATE [Concomitant]
     Active Substance: ZINC PICOLINATE
  22. lutein w/ zeaxanthin [Concomitant]
  23. k2 mk-7 w/ menaq7 [Concomitant]
  24. vit a [Concomitant]
  25. PROBIOTICS NOS [Concomitant]
     Active Substance: PROBIOTICS NOS
  26. digestive advantage digestive + immune support [Concomitant]
  27. qunol mega coq10 ubiquinol [Concomitant]
  28. vit d3 5k [Concomitant]
  29. atp 360 [Concomitant]
  30. MELATONIN [Concomitant]
     Active Substance: MELATONIN
  31. MIRALAX [Concomitant]
     Active Substance: POLYETHYLENE GLYCOL 3350
  32. MAGNESIUM CHLORIDE [Concomitant]
     Active Substance: MAGNESIUM CHLORIDE
  33. iron plus c [Concomitant]
  34. ARTEMISIA ABSINTHIUM [Concomitant]
  35. INOSITOL [Concomitant]
     Active Substance: INOSITOL
  36. GLYCINE [Concomitant]
     Active Substance: GLYCINE
  37. dlpa dl-phenalamine [Concomitant]

REACTIONS (13)
  - Fatigue [None]
  - Pain [None]
  - Tinnitus [None]
  - Photophobia [None]
  - Petechiae [None]
  - Arthralgia [None]
  - Myalgia [None]
  - Bone pain [None]
  - Alopecia [None]
  - Headache [None]
  - Neuropathy peripheral [None]
  - Insomnia [None]
  - Contrast media toxicity [None]

NARRATIVE: CASE EVENT DATE: 20220920
